FAERS Safety Report 13961387 (Version 1)
Quarter: 2017Q3

REPORT INFORMATION
  Report Type: Report from Study
  Country: CA (occurrence: CA)
  Receive Date: 20170912
  Receipt Date: 20170912
  Transmission Date: 20171128
  Serious: Yes (Other)
  Sender: FDA-Public Use
  Company Number: CA-JNJFOC-20170909165

PATIENT
  Sex: Female
  Weight: 54.9 kg

DRUGS (1)
  1. REMICADE [Suspect]
     Active Substance: INFLIXIMAB
     Indication: ANKYLOSING SPONDYLITIS
     Dosage: 120TH INFUSION
     Route: 042

REACTIONS (3)
  - Malignant melanoma [Recovering/Resolving]
  - Product use issue [Unknown]
  - Off label use [Unknown]
